FAERS Safety Report 25143255 (Version 2)
Quarter: 2025Q2

REPORT INFORMATION
  Report Type: Spontaneous
  Country: JP (occurrence: JP)
  Receive Date: 20250401
  Receipt Date: 20250415
  Transmission Date: 20250716
  Serious: Yes (Hospitalization, Other)
  Sender: ALEXION PHARMACEUTICALS
  Company Number: JP-ASTRAZENECA-250030525_063010_P_1

PATIENT
  Age: 77 Year

DRUGS (15)
  1. DAPAGLIFLOZIN [Suspect]
     Active Substance: DAPAGLIFLOZIN
     Indication: Chronic kidney disease
     Dosage: 10 MILLIGRAM, QD
  2. LOKELMA [Suspect]
     Active Substance: SODIUM ZIRCONIUM CYCLOSILICATE
     Indication: Hyperkalaemia
  3. LOKELMA [Suspect]
     Active Substance: SODIUM ZIRCONIUM CYCLOSILICATE
  4. BISOPROLOL [Concomitant]
     Active Substance: BISOPROLOL
     Route: 065
  5. SACUBITRIL [Concomitant]
     Active Substance: SACUBITRIL
     Route: 065
  6. SPIRONOLACTONE [Concomitant]
     Active Substance: SPIRONOLACTONE
     Route: 065
  7. TOLVAPTAN [Concomitant]
     Active Substance: TOLVAPTAN
     Route: 065
  8. AZOSEMIDE [Concomitant]
     Active Substance: AZOSEMIDE
     Route: 065
  9. DAPRODUSTAT [Concomitant]
     Active Substance: DAPRODUSTAT
     Route: 065
  10. FEBUXOSTAT [Concomitant]
     Active Substance: FEBUXOSTAT
     Route: 065
  11. LEVOTHYROXINE [Concomitant]
     Active Substance: LEVOTHYROXINE
     Route: 065
  12. SACUBITRIL\VALSARTAN [Concomitant]
     Active Substance: SACUBITRIL\VALSARTAN
     Route: 065
  13. SACUBITRIL\VALSARTAN [Concomitant]
     Active Substance: SACUBITRIL\VALSARTAN
     Route: 065
  14. LEVOTHYROXINE SODIUM [Concomitant]
     Active Substance: LEVOTHYROXINE SODIUM
     Route: 065
  15. CALCIUM GLUCONATE [Concomitant]
     Active Substance: CALCIUM GLUCONATE

REACTIONS (5)
  - Chronic kidney disease [Unknown]
  - Renal atrophy [Unknown]
  - Diarrhoea [Recovering/Resolving]
  - Hyperkalaemia [Recovering/Resolving]
  - Metabolic acidosis [Recovering/Resolving]
